FAERS Safety Report 24195842 (Version 1)
Quarter: 2024Q3

REPORT INFORMATION
  Report Type: Spontaneous
  Country: AU (occurrence: AU)
  Receive Date: 20240809
  Receipt Date: 20240809
  Transmission Date: 20241017
  Serious: Yes (Hospitalization, Other)
  Sender: PURDUE
  Company Number: AU-PURDUE-USA-2024-0311243

PATIENT
  Age: 3 Decade
  Sex: Male

DRUGS (1)
  1. DRONABINOL [Suspect]
     Active Substance: DRONABINOL
     Indication: Product used for unknown indication
     Dosage: UNKNOWN
     Route: 055

REACTIONS (6)
  - Respiratory arrest [Unknown]
  - Respiratory acidosis [Unknown]
  - Hypoventilation [Unknown]
  - Pneumonia aspiration [Unknown]
  - Apnoeic attack [Recovered/Resolved]
  - Toxicity to various agents [Unknown]
